FAERS Safety Report 18387394 (Version 1)
Quarter: 2020Q4

REPORT INFORMATION
  Report Type: Spontaneous
  Country: US (occurrence: US)
  Receive Date: 20201015
  Receipt Date: 20201015
  Transmission Date: 20210114
  Serious: Yes (Other)
  Sender: FDA-Public Use
  Company Number: None

PATIENT
  Age: 11 Year
  Sex: Male
  Weight: 43.2 kg

DRUGS (5)
  1. ACETAMINOPHEN. [Concomitant]
     Active Substance: ACETAMINOPHEN
     Dates: start: 20201014, end: 20201014
  2. DIPHENHYDRAMINE. [Concomitant]
     Active Substance: DIPHENHYDRAMINE
     Dates: start: 20201014, end: 20201014
  3. NORMAL SALINE [Concomitant]
     Active Substance: SODIUM CHLORIDE
     Dates: start: 20201014, end: 20201014
  4. HYDROCORTISONE. [Concomitant]
     Active Substance: HYDROCORTISONE
     Dates: start: 20201014, end: 20201014
  5. RITUXIMAB. [Suspect]
     Active Substance: RITUXIMAB
     Indication: NEPHROTIC SYNDROME
     Dosage: ?          OTHER FREQUENCY:ONCE;?
     Route: 041
     Dates: start: 20201014, end: 20201014

REACTIONS (1)
  - Throat irritation [None]

NARRATIVE: CASE EVENT DATE: 20201014
